FAERS Safety Report 8257707-8 (Version None)
Quarter: 2012Q2

REPORT INFORMATION
  Report Type: 
  Country: None (occurrence: None)
  Receive Date: 20120404
  Receipt Date: 20120307
  Transmission Date: 20120825
  Serious: No
  Sender: FDA-Public Use
  Company Number: US-BAYER-2012-019016

PATIENT
  Age: 68 Year
  Sex: Female
  Weight: 91 kg

DRUGS (7)
  1. PEPCID AC [Concomitant]
  2. ALEVE (CAPLET) [Suspect]
     Dosage: 1 U, QOD
     Route: 048
     Dates: start: 20120220, end: 20120221
  3. VITAMIN D [Concomitant]
  4. ASPIRIN [Suspect]
     Route: 048
  5. ADVAIR DISKUS 100/50 [Concomitant]
  6. CETIRIZINE HCL [Concomitant]
  7. LOVAZA [Concomitant]

REACTIONS (5)
  - SNEEZING [None]
  - RHINORRHOEA [None]
  - DRUG HYPERSENSITIVITY [None]
  - ADVERSE EVENT [None]
  - OCULAR HYPERAEMIA [None]
